FAERS Safety Report 18933587 (Version 1)
Quarter: 2021Q1

REPORT INFORMATION
  Report Type: Spontaneous
  Country: US (occurrence: US)
  Receive Date: 20210223
  Receipt Date: 20210223
  Transmission Date: 20210420
  Serious: No
  Sender: FDA-Public Use
  Company Number: None

PATIENT
  Sex: Female

DRUGS (2)
  1. OTEZLA [Suspect]
     Active Substance: APREMILAST
     Indication: POLYARTHRITIS
     Route: 048
     Dates: start: 20201119
  2. OTEZLA [Suspect]
     Active Substance: APREMILAST
     Indication: NECK PAIN
     Route: 048
     Dates: start: 20201119

REACTIONS (1)
  - Therapy non-responder [None]
